FAERS Safety Report 17077893 (Version 1)
Quarter: 2019Q4

REPORT INFORMATION
  Report Type: Spontaneous
  Country: AU (occurrence: AU)
  Receive Date: 20191126
  Receipt Date: 20191126
  Transmission Date: 20200122
  Serious: Yes (Hospitalization, Other)
  Sender: FDA-Public Use
  Company Number: AU-PFIZER INC-2019511921

PATIENT
  Sex: Female

DRUGS (2)
  1. SOMAC [Suspect]
     Active Substance: PANTOPRAZOLE SODIUM
     Dosage: UNK (40 MG IN MORNING AND 40 MG AT NIGHT BUT WAS NOT ALWAYS TWICE DAILY)
  2. PALEXIA [Concomitant]
     Active Substance: TAPENTADOL HYDROCHLORIDE
     Dosage: UNK

REACTIONS (3)
  - Hernia [Unknown]
  - Product dose omission [Unknown]
  - Constipation [Unknown]
